FAERS Safety Report 5464169-2 (Version None)
Quarter: 2007Q3

REPORT INFORMATION
  Report Type: 
  Country: None (occurrence: None)
  Receive Date: 20070921
  Receipt Date: 20070912
  Transmission Date: 20080115
  Serious: Yes (Hospitalization)
  Sender: FDA-Public Use
  Company Number: US-GENENTECH-247603

PATIENT
  Sex: Male
  Weight: 17.7 kg

DRUGS (4)
  1. SOMATROPIN [Suspect]
     Indication: SEPTO-OPTIC DYSPLASIA
     Dosage: 0.45 MG, QD
     Route: 058
     Dates: start: 20020308
  2. LEVOTHYROXINE SODIUM [Concomitant]
     Indication: DRUG USE FOR UNKNOWN INDICATION
     Dosage: 62.5 A?G, QD
     Route: 048
     Dates: start: 20020715
  3. PREVACID DR [Concomitant]
     Indication: DRUG USE FOR UNKNOWN INDICATION
     Dosage: 30 MG, QD
     Route: 048
  4. CLONIDINE [Concomitant]
     Indication: DRUG USE FOR UNKNOWN INDICATION
     Dosage: 0.1 MG, QHS
     Route: 048

REACTIONS (1)
  - PYELONEPHRITIS [None]
